FAERS Safety Report 21759861 (Version 1)
Quarter: 2022Q4

REPORT INFORMATION
  Report Type: Report from Study
  Country: US (occurrence: US)
  Receive Date: 20221221
  Receipt Date: 20221221
  Transmission Date: 20230113
  Serious: No
  Sender: FDA-Public Use
  Company Number: US-ABBVIE-4239161

PATIENT
  Age: 43 Year
  Sex: Female

DRUGS (3)
  1. HUMIRA [Suspect]
     Active Substance: ADALIMUMAB
     Indication: Colitis ulcerative
     Dosage: FORM STRENGTH: 40 MG,  CITRATE FREE
     Route: 058
     Dates: start: 2019
  2. HUMIRA [Suspect]
     Active Substance: ADALIMUMAB
     Indication: Crohn^s disease
  3. COVID-19 vaccine [Concomitant]
     Indication: COVID-19 immunisation
     Dosage: FREQUENCY : ONE IN ONCE
     Route: 030

REACTIONS (9)
  - Malaise [Recovering/Resolving]
  - Cough [Recovered/Resolved]
  - Emotional disorder [Unknown]
  - Injection site vesicles [Recovering/Resolving]
  - Pain in extremity [Recovering/Resolving]
  - Nervousness [Unknown]
  - SARS-CoV-2 test positive [Recovered/Resolved]
  - Device issue [Unknown]
  - Crohn^s disease [Not Recovered/Not Resolved]

NARRATIVE: CASE EVENT DATE: 20211201
